FAERS Safety Report 20176493 (Version 1)
Quarter: 2021Q4

REPORT INFORMATION
  Report Type: Spontaneous
  Country: US (occurrence: None)
  Receive Date: 20211210
  Receipt Date: 20211210
  Transmission Date: 20220303
  Serious: No
  Sender: FDA-Public Use
  Company Number: None

PATIENT
  Age: 30 Year
  Sex: Female
  Weight: 83.25 kg

DRUGS (1)
  1. FREMANEZUMAB-VFRM [Suspect]
     Active Substance: FREMANEZUMAB-VFRM
     Indication: Migraine prophylaxis
     Dosage: OTHER QUANTITY : 1 INJECTION(S);?OTHER FREQUENCY : ONCE A MONTH;?
     Route: 058
     Dates: start: 20211127

REACTIONS (7)
  - Musculoskeletal stiffness [None]
  - Head discomfort [None]
  - Neck pain [None]
  - Eye pain [None]
  - Nausea [None]
  - Decreased appetite [None]
  - Fatigue [None]

NARRATIVE: CASE EVENT DATE: 20211129
